FAERS Safety Report 8324340-9 (Version None)
Quarter: 2012Q1

REPORT INFORMATION
  Report Type: 
  Country: None (occurrence: None)
  Receive Date: 20120315
  Receipt Date: 20110517
  Transmission Date: 20120608
  Serious: No
  Sender: FDA-Public Use
  Company Number: PHHY2011US42783

PATIENT
  Sex: Female

DRUGS (5)
  1. GILENYA [Suspect]
     Dosage: 0.5 MG, QD
  2. NAPROXEN [Concomitant]
  3. SYNTHROID (LEVOTHYROXIE SODIUM) [Concomitant]
  4. NORTRIPTYLINE HCL [Concomitant]
  5. BETASERON (ALBUMN HUMAN, GLUCOSE, INTERFERON BETA) [Suspect]
     Dosage: 1 U, EVERY OTHER DAY

REACTIONS (3)
  - HYPOAESTHESIA [None]
  - PARAESTHESIA [None]
  - FEELING ABNORMAL [None]
